FAERS Safety Report 9057816 (Version 1)
Quarter: 2013Q1

REPORT INFORMATION
  Report Type: Spontaneous
  Country: US (occurrence: None)
  Receive Date: 20130204
  Receipt Date: 20130204
  Transmission Date: 20140127
  Serious: No
  Sender: FDA-Public Use
  Company Number: None

PATIENT
  Age: 65 Year
  Sex: Male
  Weight: 67.13 kg

DRUGS (1)
  1. HIZENTRA [Suspect]
     Indication: PRIMARY IMMUNODEFICIENCY SYNDROME
     Dosage: 15 GRAMS/ IN 7 5ML WEEKLY, SQ
     Dates: start: 20130117, end: 20130117

REACTIONS (8)
  - Infusion site discomfort [None]
  - Infusion site haemorrhage [None]
  - Abdominal distension [None]
  - Initial insomnia [None]
  - Infusion site mass [None]
  - Refusal of treatment by patient [None]
  - Type IV hypersensitivity reaction [None]
  - Abdominal distension [None]
